FAERS Safety Report 11349825 (Version 1)
Quarter: 2015Q3

REPORT INFORMATION
  Report Type: Spontaneous
  Country: BR (occurrence: BR)
  Receive Date: 20150807
  Receipt Date: 20150807
  Transmission Date: 20151125
  Serious: Yes (Other)
  Sender: FDA-Public Use
  Company Number: BR-JNJFOC-20150800606

PATIENT
  Sex: Male

DRUGS (2)
  1. HALDOL [Suspect]
     Active Substance: HALOPERIDOL
     Indication: FEELING OF RELAXATION
     Route: 065
     Dates: start: 2010
  2. HALDOL [Suspect]
     Active Substance: HALOPERIDOL
     Indication: FEELING OF RELAXATION
     Route: 065

REACTIONS (15)
  - Blood pressure decreased [Unknown]
  - Asthenia [Unknown]
  - Confusional state [Unknown]
  - Anxiety [Unknown]
  - Depressed mood [Unknown]
  - Delirium [Unknown]
  - Somnolence [Unknown]
  - Off label use [Unknown]
  - Inappropriate schedule of drug administration [Unknown]
  - Pain [Unknown]
  - Hunger [Unknown]
  - Insomnia [Unknown]
  - Heart rate abnormal [Unknown]
  - Body temperature increased [Unknown]
  - Arthralgia [Unknown]

NARRATIVE: CASE EVENT DATE: 2010
